FAERS Safety Report 5145435-7 (Version None)
Quarter: 2006Q4

REPORT INFORMATION
  Report Type: 
  Country: None (occurrence: None)
  Receive Date: 20061101
  Receipt Date: 20061027
  Transmission Date: 20070319
  Serious: Yes (Death)
  Sender: FDA-Public Use
  Company Number: HQWYE696327OCT06

PATIENT
  Sex: 0

DRUGS (1)
  1. CORDARONE [Suspect]
     Dosage: INTRAVENOUS
     Route: 042

REACTIONS (2)
  - DRUG CHEMICAL INCOMPATIBILITY [None]
  - WRONG TECHNIQUE IN DRUG USAGE PROCESS [None]
